FAERS Safety Report 20713814 (Version 3)
Quarter: 2023Q2

REPORT INFORMATION
  Report Type: Spontaneous
  Country: US (occurrence: None)
  Receive Date: 20220415
  Receipt Date: 20230623
  Transmission Date: 20230721
  Serious: No
  Sender: FDA-Public Use
  Company Number: 2022A137339

PATIENT
  Age: 820 Month
  Sex: Female
  Weight: 90.7 kg

DRUGS (2)
  1. FASENRA [Suspect]
     Active Substance: BENRALIZUMAB
     Indication: Asthma
     Route: 058
     Dates: start: 202108
  2. BREZTRI [Suspect]
     Active Substance: BUDESONIDE\FORMOTEROL\GLYCOPYRROLATE
     Indication: Asthma
     Dosage: 160/9/4.8MCG, 120 INHALATION
     Route: 055
     Dates: start: 202112

REACTIONS (5)
  - Weight decreased [Unknown]
  - Weight increased [Unknown]
  - Nodule [Unknown]
  - Oral candidiasis [Not Recovered/Not Resolved]
  - Product use in unapproved indication [Unknown]

NARRATIVE: CASE EVENT DATE: 20211001
